FAERS Safety Report 26019976 (Version 1)
Quarter: 2025Q4

REPORT INFORMATION
  Report Type: Report from Study
  Country: US (occurrence: US)
  Receive Date: 20251110
  Receipt Date: 20251110
  Transmission Date: 20260118
  Serious: Yes (Other)
  Sender: BAYER HEALTHCARE LLC
  Company Number: US-BAYER-2025A147696

PATIENT
  Age: 75 Year

DRUGS (1)
  1. ASPIRIN [Suspect]
     Active Substance: ASPIRIN
     Dosage: 81 MG, QD

REACTIONS (1)
  - Subdural haematoma [None]
